FAERS Safety Report 11922406 (Version 1)
Quarter: 2016Q1

REPORT INFORMATION
  Report Type: Spontaneous
  Country: US (occurrence: US)
  Receive Date: 20160115
  Receipt Date: 20160115
  Transmission Date: 20160526
  Serious: Yes (Death)
  Sender: FDA-Public Use
  Company Number: US-INCYTE CORPORATION-2016IN000166

PATIENT
  Age: 88 Year
  Sex: Male
  Weight: 68.03 kg

DRUGS (1)
  1. JAKAFI [Suspect]
     Active Substance: RUXOLITINIB
     Dosage: 15 MG, BID
     Route: 048
     Dates: start: 20130524, end: 20151213

REACTIONS (1)
  - Death [Fatal]

NARRATIVE: CASE EVENT DATE: 20151213
